FAERS Safety Report 19499735 (Version 1)
Quarter: 2021Q3

REPORT INFORMATION
  Report Type: Spontaneous
  Country: CZ (occurrence: CZ)
  Receive Date: 20210707
  Receipt Date: 20210707
  Transmission Date: 20211014
  Serious: Yes (Other)
  Sender: FDA-Public Use
  Company Number: CZ-TEVA-2021-CZ-1929429

PATIENT
  Age: 64 Year
  Sex: Male

DRUGS (1)
  1. DOXYBENE 200MG [Suspect]
     Active Substance: DOXYCYCLINE
     Dosage: 1 DF
     Dates: start: 20210603, end: 20210605

REACTIONS (2)
  - Headache [Not Recovered/Not Resolved]
  - Visual impairment [Not Recovered/Not Resolved]
